FAERS Safety Report 14880946 (Version 1)
Quarter: 2018Q2

REPORT INFORMATION
  Report Type: Spontaneous
  Country: US (occurrence: US)
  Receive Date: 20180511
  Receipt Date: 20180511
  Transmission Date: 20180711
  Serious: Yes (Other)
  Sender: FDA-Public Use
  Company Number: US-BAYER-2018-083970

PATIENT
  Age: 82 Year
  Sex: Female
  Weight: 73 kg

DRUGS (2)
  1. BAYER ASPIRIN [Suspect]
     Active Substance: ASPIRIN
     Indication: CEREBROVASCULAR ACCIDENT PROPHYLAXIS
     Dosage: 1 DF, QD
     Route: 048
  2. CITRACAL MAXIMUM [Suspect]
     Active Substance: CALCIUM CITRATE\CHOLECALCIFEROL
     Indication: NUTRITIONAL SUPPLEMENTATION
     Dosage: 1 DF, QD
     Route: 048

REACTIONS (4)
  - Product use in unapproved indication [None]
  - Choking [Recovered/Resolved]
  - Product use complaint [None]
  - Underdose [Unknown]
